FAERS Safety Report 6177292-4 (Version None)
Quarter: 2009Q2

REPORT INFORMATION
  Report Type: 
  Country: None (occurrence: None)
  Receive Date: 20090504
  Receipt Date: 20090428
  Transmission Date: 20091009
  Serious: Yes (Other)
  Sender: FDA-Public Use
  Company Number: US-BAYER-200912809NA

PATIENT
  Age: 48 Year
  Sex: Male

DRUGS (1)
  1. AVELOX [Suspect]
     Indication: DRUG USE FOR UNKNOWN INDICATION

REACTIONS (4)
  - ANAPHYLACTIC REACTION [None]
  - HYPOTENSION [None]
  - HYPOXIA [None]
  - URTICARIA [None]
